FAERS Safety Report 4326642-X (Version None)
Quarter: 2004Q1

REPORT INFORMATION
  Report Type: 
  Country: None (occurrence: None)
  Receive Date: 20040329
  Receipt Date: 20040329
  Transmission Date: 20041129
  Serious: Yes (Hospitalization)
  Sender: FDA-Public Use
  Company Number: None

PATIENT
  Age: 51 Year
  Sex: Female

DRUGS (1)
  1. PSEUDOEPHEDRINE HCL [Suspect]
     Indication: NASAL CONGESTION
     Dosage: 30 MG (OTC)

REACTIONS (4)
  - ARTERIOSPASM CORONARY [None]
  - MUSCLE TWITCHING [None]
  - RETCHING [None]
  - VOMITING [None]
